FAERS Safety Report 7214053-9 (Version None)
Quarter: 2011Q1

REPORT INFORMATION
  Report Type: 
  Country: None (occurrence: None)
  Receive Date: 20110107
  Receipt Date: 20101227
  Transmission Date: 20110831
  Serious: No
  Sender: FDA-Public Use
  Company Number: US-BIOGENIDEC-2010BI044800

PATIENT
  Age: 24 Year
  Sex: Male

DRUGS (1)
  1. AVONEX [Suspect]
     Indication: MULTIPLE SCLEROSIS
     Route: 030
     Dates: start: 20101220

REACTIONS (5)
  - GENERALISED ERYTHEMA [None]
  - ASTHENIA [None]
  - ANXIETY [None]
  - HEADACHE [None]
  - INFLUENZA LIKE ILLNESS [None]
